FAERS Safety Report 4523007-2 (Version None)
Quarter: 2004Q4

REPORT INFORMATION
  Report Type: 
  Country: None (occurrence: None)
  Receive Date: 20041208
  Receipt Date: 20041126
  Transmission Date: 20050328
  Serious: Yes (Other)
  Sender: FDA-Public Use
  Company Number: 2004077318

PATIENT
  Age: 37 Year
  Sex: Male

DRUGS (1)
  1. ZITHROMAX [Suspect]
     Indication: ERYSIPELAS
     Dosage: 500 MG (500 MG, 1 IN 1 D), INTRAVENOUS
     Route: 042

REACTIONS (4)
  - DIZZINESS [None]
  - HYPERHIDROSIS [None]
  - HYPOTENSION [None]
  - INJECTION SITE BURNING [None]
